FAERS Safety Report 17110600 (Version 1)
Quarter: 2019Q4

REPORT INFORMATION
  Report Type: Spontaneous
  Country: US (occurrence: US)
  Receive Date: 20191108
  Receipt Date: 20191108
  Transmission Date: 20200122
  Serious: Yes (Other)
  Sender: FDA-Public Use
  Company Number: None

PATIENT
  Age: 63 Year
  Sex: Male

DRUGS (1)
  1. SUTENT [Suspect]
     Active Substance: SUNITINIB MALATE
     Indication: GASTROINTESTINAL STROMAL TUMOUR
     Dosage: ?          OTHER FREQUENCY:QD X4 WEEKS;?
     Route: 048
     Dates: start: 20190702

REACTIONS (5)
  - Hypersomnia [None]
  - Bedridden [None]
  - Decreased appetite [None]
  - Diarrhoea [None]
  - Headache [None]

NARRATIVE: CASE EVENT DATE: 201911
